FAERS Safety Report 17011486 (Version 1)
Quarter: 2019Q4

REPORT INFORMATION
  Report Type: Spontaneous
  Country: US (occurrence: US)
  Receive Date: 20191108
  Receipt Date: 20191108
  Transmission Date: 20200122
  Serious: Yes (Other)
  Sender: FDA-Public Use
  Company Number: US-NOVOPROD-685567

PATIENT
  Sex: Female

DRUGS (3)
  1. FIASP [Concomitant]
     Active Substance: INSULIN ASPART
     Indication: TYPE 1 DIABETES MELLITUS
     Dosage: UNK
     Route: 058
  2. FIASP [Concomitant]
     Active Substance: INSULIN ASPART
     Dosage: 30.00 IU
     Route: 058
  3. TRESIBA [Suspect]
     Active Substance: INSULIN DEGLUDEC
     Indication: TYPE 1 DIABETES MELLITUS
     Dosage: 10 IU, QD (AT 6PM)
     Route: 058
     Dates: start: 2019

REACTIONS (3)
  - Device failure [Unknown]
  - Blood glucose increased [Not Recovered/Not Resolved]
  - Drug dose omission by device [Unknown]

NARRATIVE: CASE EVENT DATE: 201909
